FAERS Safety Report 8315086-1 (Version None)
Quarter: 2012Q2

REPORT INFORMATION
  Report Type: 
  Country: None (occurrence: None)
  Receive Date: 20120426
  Receipt Date: 20120416
  Transmission Date: 20120825
  Serious: Yes (Hospitalization, Other)
  Sender: FDA-Public Use
  Company Number: US-ABBOTT-12P-163-0929335-00

PATIENT
  Sex: Female
  Weight: 56.75 kg

DRUGS (7)
  1. HUMIRA [Suspect]
     Dates: start: 20120301
  2. FOLIC ACID [Concomitant]
     Indication: PRODUCT USED FOR UNKNOWN INDICATION
  3. MULTI-VITAMIN [Concomitant]
     Indication: PRODUCT USED FOR UNKNOWN INDICATION
  4. HUMIRA [Suspect]
     Indication: CROHN'S DISEASE
     Dates: start: 20100101, end: 20111201
  5. UNKNOWN STEROIDS [Suspect]
     Indication: PRODUCT USED FOR UNKNOWN INDICATION
  6. OXYCODONE HCL [Concomitant]
     Indication: PAIN
  7. MERCAPTOPURINE [Concomitant]
     Indication: PRODUCT USED FOR UNKNOWN INDICATION

REACTIONS (9)
  - CROHN'S DISEASE [None]
  - SEPSIS [None]
  - FULL BLOOD COUNT DECREASED [None]
  - CANDIDIASIS [None]
  - ABDOMINAL PAIN [None]
  - INJECTION SITE PAIN [None]
  - INTESTINAL PERFORATION [None]
  - SKIN DISCOLOURATION [None]
  - INAPPROPRIATE SCHEDULE OF DRUG ADMINISTRATION [None]
